FAERS Safety Report 19170015 (Version 1)
Quarter: 2021Q2

REPORT INFORMATION
  Report Type: Spontaneous
  Country: US (occurrence: US)
  Receive Date: 20210422
  Receipt Date: 20210422
  Transmission Date: 20210717
  Serious: Yes (Other)
  Sender: FDA-Public Use
  Company Number: US-ASTRAZENECA-2021A336160

PATIENT

DRUGS (2)
  1. NEXIUM [Suspect]
     Active Substance: ESOMEPRAZOLE MAGNESIUM
     Dosage: UNK
     Route: 048
     Dates: start: 2005, end: 2015
  2. PRILOSEC OTC [Suspect]
     Active Substance: OMEPRAZOLE MAGNESIUM
     Dosage: UNK
     Route: 048
     Dates: start: 2005, end: 2015

REACTIONS (6)
  - End stage renal disease [Unknown]
  - Pain [Unknown]
  - Hyperchlorhydria [Unknown]
  - Rebound effect [Unknown]
  - Drug dependence [Unknown]
  - Chronic kidney disease [Unknown]
